FAERS Safety Report 8584834-8 (Version None)
Quarter: 2012Q3

REPORT INFORMATION
  Report Type: 
  Country: None (occurrence: None)
  Receive Date: 20120810
  Receipt Date: 20120731
  Transmission Date: 20120928
  Serious: Yes (Hospitalization)
  Sender: FDA-Public Use
  Company Number: US-BAYER-2012-079136

PATIENT
  Age: 44 Year
  Sex: Female
  Weight: 77.642 kg

DRUGS (13)
  1. ACETAMINOPHEN AND HYDROCODONE BITARTRATE [Concomitant]
     Dosage: UNK
     Route: 048
     Dates: start: 20110719
  2. AMBIEN [Concomitant]
     Dosage: 10 MG, HS
     Route: 048
     Dates: start: 20100309
  3. OMEPRAZOLE [Concomitant]
     Dosage: 20 MG, UNK
     Route: 048
     Dates: start: 20110312, end: 20120316
  4. CIPROFLOXACIN HCL [Concomitant]
     Dosage: 500 MG, BID
     Route: 048
     Dates: start: 20110712
  5. DEXTROMETHORPHAN HYDROBROMIDE [Concomitant]
     Dosage: UNK
     Route: 048
     Dates: start: 20110723
  6. NAPROSYN [Concomitant]
     Dosage: 500 MG, BID WITH FOOD
     Route: 048
     Dates: start: 20110922
  7. CALCIUM +VIT D [Concomitant]
     Dosage: UNK UNK, BID
     Route: 048
  8. ALLEGRA [Concomitant]
     Dosage: 180 MG, UNK
     Route: 048
     Dates: start: 20100309
  9. YAZ [Suspect]
     Indication: MENOPAUSAL SYMPTOMS
  10. DROSPIRENONE AND ETHINYL ESTRADIOL [Suspect]
     Dosage: UNK
  11. NAPROXEN (ALEVE) [Concomitant]
     Indication: PAIN
     Dosage: UNK UNK, PRN
     Route: 048
  12. ZOFRAN [Concomitant]
     Dosage: 4 MG, 4-6 HOURS
     Route: 048
     Dates: start: 20110712
  13. FLUCONAZOLE [Concomitant]
     Dosage: 150 MG, UNK
     Route: 048
     Dates: start: 20110801

REACTIONS (2)
  - PULMONARY EMBOLISM [None]
  - THROMBOPHLEBITIS SUPERFICIAL [None]
